FAERS Safety Report 20697038 (Version 2)
Quarter: 2022Q2

REPORT INFORMATION
  Report Type: Report from Study
  Country: US (occurrence: None)
  Receive Date: 20220411
  Receipt Date: 20220414
  Transmission Date: 20220721
  Serious: Yes (Death)
  Sender: FDA-Public Use
  Company Number: US-ROCHE-3071014

PATIENT
  Sex: Male
  Weight: 89.9 kg

DRUGS (6)
  1. VENETOCLAX [Suspect]
     Active Substance: VENETOCLAX
     Indication: Richter^s syndrome
     Dosage: FOR 10 DAYS?LAST DOSE ON 15/MAR/2022
     Route: 048
     Dates: start: 20220310
  2. RITUXIMAB [Suspect]
     Active Substance: RITUXIMAB
     Indication: Richter^s syndrome
     Dosage: LAST DOSE ON 15/MAR/2022
     Route: 041
     Dates: start: 20220219
  3. CYCLOPHOSPHAMIDE [Suspect]
     Active Substance: CYCLOPHOSPHAMIDE
     Indication: Richter^s syndrome
     Dosage: LAST DOSE ON 15/MAR/2022
     Route: 042
     Dates: start: 20220219
  4. DOXORUBICIN [Suspect]
     Active Substance: DOXORUBICIN
     Indication: Richter^s syndrome
     Dosage: LAST DOSE ON 15/MAR/2022
     Route: 042
     Dates: start: 20220219
  5. PREDNISONE [Suspect]
     Active Substance: PREDNISONE
     Indication: Richter^s syndrome
     Dosage: LAST DOSE ON 15/MAR/2022
     Route: 042
     Dates: start: 20220219
  6. VINCRISTINE [Suspect]
     Active Substance: VINCRISTINE
     Indication: Richter^s syndrome
     Dosage: LAST DOSE ON 15/MAR/2022
     Route: 042
     Dates: start: 20220219

REACTIONS (1)
  - Sepsis [Fatal]
